FAERS Safety Report 7632982-9 (Version None)
Quarter: 2011Q3

REPORT INFORMATION
  Report Type: 
  Country: None (occurrence: None)
  Receive Date: 20110725
  Receipt Date: 20110720
  Transmission Date: 20111222
  Serious: Yes (Other)
  Sender: FDA-Public Use
  Company Number: US-PFIZER INC-2011167030

PATIENT
  Sex: Female

DRUGS (1)
  1. DILANTIN-125 [Suspect]
     Indication: EPILEPSY
     Dosage: UNK

REACTIONS (3)
  - CONVULSION [None]
  - JAW FRACTURE [None]
  - HIP FRACTURE [None]
